FAERS Safety Report 5288097-0 (Version None)
Quarter: 2007Q1

REPORT INFORMATION
  Report Type: 
  Country: None (occurrence: None)
  Receive Date: 20070116
  Receipt Date: 20061017
  Transmission Date: 20070707
  Serious: No
  Sender: FDA-Public Use
  Company Number: 2006SP003740

PATIENT
  Sex: Female
  Weight: 72.5755 kg

DRUGS (2)
  1. LUNESTA [Suspect]
     Indication: INSOMNIA
     Dosage: 3 MG; PRN; ORAL, 3 MG, 1X; ORAL
     Route: 048
     Dates: start: 20060201, end: 20060101
  2. LUNESTA [Suspect]
     Indication: INSOMNIA
     Dosage: 3 MG; PRN; ORAL, 3 MG, 1X; ORAL
     Route: 048
     Dates: start: 20060901, end: 20060901

REACTIONS (1)
  - DYSGEUSIA [None]
